FAERS Safety Report 24181457 (Version 1)
Quarter: 2024Q3

REPORT INFORMATION
  Report Type: Spontaneous
  Country: US (occurrence: US)
  Receive Date: 20240807
  Receipt Date: 20240807
  Transmission Date: 20241017
  Serious: Yes (Other)
  Sender: AMGEN
  Company Number: US-AMGEN-USASP2024151054

PATIENT
  Age: 77 Year
  Sex: Female

DRUGS (3)
  1. ENBREL [Suspect]
     Active Substance: BENZYL ALCOHOL\ETANERCEPT
     Indication: Rheumatoid arthritis
     Dosage: 50 MILLIGRAM, QWK
     Route: 065
     Dates: start: 2023, end: 202407
  2. ARAVA [Suspect]
     Active Substance: LEFLUNOMIDE
     Indication: Product used for unknown indication
     Dosage: UNK
     Route: 065
     Dates: start: 20240709
  3. CELEBREX [Concomitant]
     Active Substance: CELECOXIB
     Indication: Neuropathy peripheral
     Dosage: 2 DOSAGE FORM, QD
     Route: 065

REACTIONS (4)
  - Rheumatoid arthritis [Unknown]
  - Therapy change [Unknown]
  - Muscle spasms [Unknown]
  - Arthralgia [Recovered/Resolved]

NARRATIVE: CASE EVENT DATE: 20240701
